FAERS Safety Report 5154170-0 (Version None)
Quarter: 2006Q4

REPORT INFORMATION
  Report Type: 
  Country: None (occurrence: None)
  Receive Date: 20061120
  Receipt Date: 20061113
  Transmission Date: 20070319
  Serious: Yes (Other)
  Sender: FDA-Public Use
  Company Number: 2006UW24291

PATIENT
  Sex: Female

DRUGS (1)
  1. SEROQUEL [Suspect]
     Route: 048
     Dates: start: 20060901, end: 20061101

REACTIONS (2)
  - SELF MUTILATION [None]
  - SUICIDAL IDEATION [None]
